FAERS Safety Report 11865110 (Version 1)
Quarter: 2015Q4

REPORT INFORMATION
  Report Type: Report from Study
  Country: NZ (occurrence: NZ)
  Receive Date: 20151223
  Receipt Date: 20151223
  Transmission Date: 20160305
  Serious: Yes (Hospitalization, Other)
  Sender: FDA-Public Use
  Company Number: NZ-GILEAD-2015-0187975

PATIENT
  Age: 55 Year
  Sex: Male

DRUGS (9)
  1. OMEZOL                             /00661201/ [Concomitant]
     Indication: GASTROOESOPHAGEAL REFLUX DISEASE
     Dosage: 40 MG, QD
     Route: 048
  2. NUPENTIN [Concomitant]
     Dosage: 2 DF, TID
     Route: 048
  3. LOVIR                              /00587301/ [Concomitant]
     Dosage: 1 DF, BID
     Route: 048
  4. SPIRIVA [Concomitant]
     Active Substance: TIOTROPIUM BROMIDE MONOHYDRATE
     Dosage: 1 DF, QD
     Route: 055
  5. TACROLIMUS. [Concomitant]
     Active Substance: TACROLIMUS
     Indication: LIVER TRANSPLANT
     Dosage: 5 MG, BID
     Route: 048
     Dates: start: 20150727
  6. LEDIPASVIR/SOFOSBUVIR [Suspect]
     Active Substance: LEDIPASVIR\SOFOSBUVIR
     Indication: HEPATITIS C
     Dosage: 1 DF, UNK
     Route: 048
  7. AMITRIPTYLINE HCL [Concomitant]
     Active Substance: AMITRIPTYLINE
     Dosage: 50 MG, UNK
     Route: 048
  8. PENMIX [Concomitant]
     Dosage: 18 IU, UNK
     Route: 050
  9. PENMIX [Concomitant]
     Dosage: 40 IU, QD
     Route: 050

REACTIONS (3)
  - Ocular hyperaemia [Unknown]
  - Iritis [Unknown]
  - Eye pain [Unknown]

NARRATIVE: CASE EVENT DATE: 20151207
